FAERS Safety Report 25048727 (Version 1)
Quarter: 2025Q1

REPORT INFORMATION
  Report Type: Other
  Country: FR (occurrence: FR)
  Receive Date: 20250307
  Receipt Date: 20250307
  Transmission Date: 20250409
  Serious: Yes (Other)
  Sender: ZYDUS PHARM
  Company Number: None

PATIENT

DRUGS (2)
  1. PRAVASTATIN [Suspect]
     Active Substance: PRAVASTATIN
     Indication: Product used for unknown indication
     Route: 048
  2. TERIFLUNOMIDE [Suspect]
     Active Substance: TERIFLUNOMIDE
     Indication: Multiple sclerosis
     Route: 048
     Dates: start: 202404

REACTIONS (1)
  - Diabetes mellitus [Not Recovered/Not Resolved]

NARRATIVE: CASE EVENT DATE: 20240801
